FAERS Safety Report 9540435 (Version 1)
Quarter: 2013Q3

REPORT INFORMATION
  Report Type: Spontaneous
  Country: FI (occurrence: FI)
  Receive Date: 20130920
  Receipt Date: 20130920
  Transmission Date: 20140515
  Serious: No
  Sender: FDA-Public Use
  Company Number: FI-GLAXOSMITHKLINE-B0916021A

PATIENT
  Sex: Female

DRUGS (18)
  1. VENTOLIN [Suspect]
     Indication: DYSPNOEA
     Dosage: .2MG FOUR TIMES PER DAY
     Route: 055
  2. CETIRIZINE HYDROCHLORIDE [Concomitant]
     Route: 065
  3. ISOSORBIDE MONONITRATE [Concomitant]
     Route: 065
  4. EMCONCOR [Concomitant]
     Route: 065
  5. THYROXINE [Concomitant]
     Route: 065
  6. NITRO [Concomitant]
     Route: 065
  7. KLOTRIPTYL [Concomitant]
     Route: 065
  8. LERCANIDIPINE HYDROCHLORIDE [Concomitant]
     Route: 065
  9. PRIMASPAN [Concomitant]
     Route: 065
  10. BUSPIRONE [Concomitant]
     Route: 065
  11. SOMAC [Concomitant]
     Route: 065
  12. MELATONIN [Concomitant]
     Route: 065
  13. PLENDIL [Concomitant]
     Route: 065
  14. DOXEPIN HYDROCHLORIDE [Concomitant]
     Route: 065
  15. ATACAND [Concomitant]
     Route: 065
  16. ARTELAC [Concomitant]
     Route: 065
  17. LESCOL [Concomitant]
     Route: 065
  18. SELEXID [Concomitant]
     Route: 065

REACTIONS (2)
  - Palpitations [Recovered/Resolved]
  - Product quality issue [Unknown]
